FAERS Safety Report 9738257 (Version 1)
Quarter: 2013Q4

REPORT INFORMATION
  Report Type: Spontaneous
  Country: US (occurrence: US)
  Receive Date: 20131208
  Receipt Date: 20131208
  Transmission Date: 20140711
  Serious: No
  Sender: FDA-Public Use
  Company Number: -SAAVPROD-RENA-1001680

PATIENT
  Age: 47 Year
  Sex: Female

DRUGS (3)
  1. SEVELAMER CARBONATE [Suspect]
     Indication: HYPERPHOSPHATAEMIA
     Dosage: 4-7 PILLS PER MEAL
     Route: 065
  2. GEMFIBROZIL [Suspect]
     Indication: PRODUCT USED FOR UNKNOWN INDICATION
     Dosage: UNK
     Route: 065
  3. LOVAZA [Suspect]
     Indication: PRODUCT USED FOR UNKNOWN INDICATION
     Dosage: UNK
     Route: 065

REACTIONS (2)
  - Hyperphosphataemia [Not Recovered/Not Resolved]
  - Abdominal distension [Not Recovered/Not Resolved]
